FAERS Safety Report 14746369 (Version 3)
Quarter: 2019Q2

REPORT INFORMATION
  Report Type: Spontaneous
  Country: KR (occurrence: KR)
  Receive Date: 20180411
  Receipt Date: 20190423
  Transmission Date: 20190711
  Serious: Yes (Other)
  Sender: FDA-Public Use
  Company Number: KR-PFIZER INC-2018140715

PATIENT
  Age: 64 Year
  Sex: Male

DRUGS (4)
  1. CARBOPLATIN. [Suspect]
     Active Substance: CARBOPLATIN
     Indication: LUNG ADENOCARCINOMA STAGE IV
     Dosage: 6 MG/ML X MIN [CARBOPLATIN AREA UNDER THE CURVE (AUC)], EVERY 3 WEEKS
     Route: 042
     Dates: start: 2017
  2. DOCETAXEL. [Suspect]
     Active Substance: DOCETAXEL
     Indication: LUNG ADENOCARCINOMA STAGE IV
     Dosage: 75 MG/M2, EVERY 3 WEEKS (DAY 1)
     Route: 042
     Dates: start: 2017
  3. WARFARIN [Concomitant]
     Active Substance: WARFARIN
     Dosage: 5 MG, DAILY
  4. CANDESARTAN. [Concomitant]
     Active Substance: CANDESARTAN
     Dosage: 8 MG, DAILY

REACTIONS (1)
  - Chondritis [Not Recovered/Not Resolved]

NARRATIVE: CASE EVENT DATE: 2017
